FAERS Safety Report 24652218 (Version 2)
Quarter: 2024Q4

REPORT INFORMATION
  Report Type: Report from Study
  Country: DE (occurrence: DE)
  Receive Date: 20241122
  Receipt Date: 20241220
  Transmission Date: 20250115
  Serious: Yes (Life-Threatening, Hospitalization)
  Sender: EMD SERONO INC
  Company Number: DE-Merck Healthcare KGaA-2024050578

PATIENT
  Age: 40 Year
  Sex: Female
  Weight: 54 kg

DRUGS (6)
  1. CLADRIBINE [Suspect]
     Active Substance: CLADRIBINE
     Indication: Relapsing-remitting multiple sclerosis
     Dosage: YEAR ONE WEEK ONE THERAPY
     Dates: start: 20191003, end: 20191007
  2. CLADRIBINE [Suspect]
     Active Substance: CLADRIBINE
     Dosage: YEAR ONE WEEK TWO THERAPY
     Dates: start: 20191103, end: 20191107
  3. CLADRIBINE [Suspect]
     Active Substance: CLADRIBINE
     Dosage: YEAR TWO WEEK ONE THERAPY
     Dates: start: 20201005, end: 20201009
  4. CLADRIBINE [Suspect]
     Active Substance: CLADRIBINE
     Dosage: YEAR TWO WEEK TWO THERAPY
     Dates: start: 20201105, end: 20201109
  5. CLADRIBINE [Suspect]
     Active Substance: CLADRIBINE
     Dosage: YEAR FIVE-WEEK ONE THERAPY
     Dates: start: 20231120, end: 20231124
  6. CLADRIBINE [Suspect]
     Active Substance: CLADRIBINE
     Dosage: YEAR FIVE-WEEK TWO THERAPY
     Dates: start: 20231225, end: 20231229

REACTIONS (4)
  - Urosepsis [Recovered/Resolved]
  - C-reactive protein increased [Recovered/Resolved]
  - Leukocytosis [Recovered/Resolved]
  - Lymphopenia [Recovered/Resolved]

NARRATIVE: CASE EVENT DATE: 20240916
